FAERS Safety Report 14374399 (Version 1)
Quarter: 2018Q1

REPORT INFORMATION
  Report Type: Spontaneous
  Country: FR (occurrence: FR)
  Receive Date: 20180111
  Receipt Date: 20180111
  Transmission Date: 20180509
  Serious: Yes (Life-Threatening, Hospitalization)
  Sender: FDA-Public Use
  Company Number: FR-CONCORDIA PHARMACEUTICALS INC.-E2B_00009409

PATIENT
  Age: 54 Year
  Sex: Female
  Weight: 79 kg

DRUGS (14)
  1. ARANESP [Concomitant]
     Active Substance: DARBEPOETIN ALFA
  2. CEFTRIAXONE BASE [Concomitant]
     Active Substance: CEFTRIAXONE
  3. PHOSPHORE [Concomitant]
  4. ATORVASTATINE [Concomitant]
     Active Substance: ATORVASTATIN
  5. INSULINE [Concomitant]
     Active Substance: INSULIN NOS
  6. CELLCEPT [Suspect]
     Active Substance: MYCOPHENOLATE MOFETIL\MYCOPHENOLATE MOFETIL HYDROCHLORIDE
     Indication: HEART TRANSPLANT
     Route: 048
     Dates: start: 20170818
  7. HEPARINE CALCIQUE [Concomitant]
     Active Substance: HEPARIN CALCIUM
  8. PREDNISOLONE. [Suspect]
     Active Substance: PREDNISOLONE
     Indication: HEART TRANSPLANT
     Route: 048
     Dates: start: 20170818
  9. KARDEGIC [Concomitant]
     Active Substance: ASPIRIN DL-LYSINE
  10. BURINEX [Concomitant]
     Active Substance: BUMETANIDE
  11. CALCIDOSE [Concomitant]
     Active Substance: CALCIUM CARBONATE
  12. NEORAL [Suspect]
     Active Substance: CYCLOSPORINE
     Indication: HEART TRANSPLANT
     Route: 048
     Dates: start: 20170818, end: 20171104
  13. POTASSIUM [Concomitant]
     Active Substance: POTASSIUM
     Route: 042
  14. DIFFU K, G?LULE [Concomitant]
     Active Substance: POTASSIUM CHLORIDE

REACTIONS (2)
  - Cytomegalovirus colitis [Not Recovered/Not Resolved]
  - Posterior reversible encephalopathy syndrome [Recovering/Resolving]

NARRATIVE: CASE EVENT DATE: 20171103
